FAERS Safety Report 12609909 (Version 1)
Quarter: 2016Q3

REPORT INFORMATION
  Report Type: Spontaneous
  Country: US (occurrence: US)
  Receive Date: 20160801
  Receipt Date: 20160801
  Transmission Date: 20161109
  Serious: No
  Sender: FDA-Public Use
  Company Number: US-BAYER-2016-147559

PATIENT
  Age: 54 Year
  Sex: Male
  Weight: 95.24 kg

DRUGS (5)
  1. PRAVASTATIN. [Concomitant]
     Active Substance: PRAVASTATIN
  2. AMILORIDE [Concomitant]
     Active Substance: AMILORIDE
  3. NITROGLYCERIN. [Concomitant]
     Active Substance: NITROGLYCERIN
  4. BAYER LOW DOSE [Concomitant]
     Active Substance: ASPIRIN
     Indication: ISCHAEMIC HEART DISEASE PROPHYLAXIS
  5. ALEVE [Suspect]
     Active Substance: NAPROXEN SODIUM
     Indication: ANTICOAGULANT THERAPY
     Dosage: 2 DF, PRN
     Route: 048
     Dates: start: 2009

REACTIONS (1)
  - Product use issue [None]

NARRATIVE: CASE EVENT DATE: 2009
